FAERS Safety Report 10469401 (Version 1)
Quarter: 2014Q3

REPORT INFORMATION
  Report Type: Spontaneous
  Country: US (occurrence: None)
  Receive Date: 20140903
  Receipt Date: 20140903
  Transmission Date: 20150326
  Serious: Yes (Other)
  Sender: FDA-Public Use
  Company Number: 1390877

PATIENT
  Age: 79 Year
  Sex: Male
  Weight: 92.99 kg

DRUGS (7)
  1. HYDROCORTISONE. [Concomitant]
     Active Substance: HYDROCORTISONE
  2. BENADRYL (UNITED STATES) (DIPHENHYDRAMINE HYDROCHLORIDE) [Concomitant]
  3. PEPCID [Concomitant]
     Active Substance: FAMOTIDINE
  4. GAZYVA [Suspect]
     Active Substance: OBINUTUZUMAB
     Indication: CHRONIC LYMPHOCYTIC LEUKAEMIA
     Dosage: DID NOT COMPLETE 100MG ON DAY 1 AND 900MG ON DAY 2 (100 MG)
     Route: 042
     Dates: start: 20140415, end: 20140415
  5. TYLENOL [Concomitant]
     Active Substance: ACETAMINOPHEN
  6. DECADRON [Concomitant]
     Active Substance: DEXAMETHASONE
  7. ALLOPURINOL. [Concomitant]
     Active Substance: ALLOPURINOL

REACTIONS (1)
  - Infusion related reaction [None]

NARRATIVE: CASE EVENT DATE: 20140415
